FAERS Safety Report 7051452-2 (Version None)
Quarter: 2010Q4

REPORT INFORMATION
  Report Type: 
  Country: None (occurrence: None)
  Receive Date: 20101019
  Receipt Date: 20101011
  Transmission Date: 20110411
  Serious: Yes (Death, Hospitalization)
  Sender: FDA-Public Use
  Company Number: A0885725A

PATIENT
  Age: 34 Year
  Sex: Male

DRUGS (1)
  1. ARIXTRA [Suspect]
     Indication: PRODUCT USED FOR UNKNOWN INDICATION
     Dates: start: 20100614

REACTIONS (3)
  - DEATH [None]
  - PRE-EXISTING DISEASE [None]
  - TREATMENT NONCOMPLIANCE [None]
